FAERS Safety Report 14418467 (Version 1)
Quarter: 2018Q1

REPORT INFORMATION
  Report Type: Spontaneous
  Country: US (occurrence: US)
  Receive Date: 20180122
  Receipt Date: 20180122
  Transmission Date: 20180509
  Serious: No
  Sender: FDA-Public Use
  Company Number: US-INTERCEPT-PMOCA2017001499

PATIENT

DRUGS (1)
  1. OCALIVA [Suspect]
     Active Substance: OBETICHOLIC ACID
     Indication: PRIMARY BILIARY CHOLANGITIS
     Dosage: 5 MG, QD
     Route: 048
     Dates: start: 20161117

REACTIONS (5)
  - Drug dose omission [Unknown]
  - Pruritus [Recovered/Resolved]
  - Genital herpes [Unknown]
  - Hysterectomy [Unknown]
  - Fatigue [Recovering/Resolving]
